FAERS Safety Report 22356495 (Version 2)
Quarter: 2023Q2

REPORT INFORMATION
  Report Type: Report from Study
  Country: FI (occurrence: FI)
  Receive Date: 20230523
  Receipt Date: 20230602
  Transmission Date: 20230722
  Serious: Yes (Other)
  Sender: FDA-Public Use
  Company Number: FI-MYLANLABS-2023M1051921

PATIENT
  Age: 57 Year
  Sex: Male

DRUGS (34)
  1. CLOZAPINE [Suspect]
     Active Substance: CLOZAPINE
     Indication: Schizophrenia
     Dosage: UNK
     Route: 065
     Dates: start: 202211
  2. CLOZAPINE [Suspect]
     Active Substance: CLOZAPINE
     Dosage: UNK
     Route: 065
     Dates: end: 20230515
  3. CLOZAPINE [Suspect]
     Active Substance: CLOZAPINE
     Dosage: UNK (3-WEEK DOSE ESCALATION SCHEDULE)
     Route: 065
     Dates: end: 20230508
  4. CLOZAPINE [Suspect]
     Active Substance: CLOZAPINE
     Dosage: UNK
     Route: 065
     Dates: end: 20230513
  5. AMISULPRIDE [Concomitant]
     Active Substance: AMISULPRIDE
     Dosage: 800 MILLIGRAM (400+400)
     Route: 065
  6. AMISULPRIDE [Concomitant]
     Active Substance: AMISULPRIDE
     Dosage: 600 MILLIGRAM (400+200)
     Route: 065
  7. AMISULPRIDE [Concomitant]
     Active Substance: AMISULPRIDE
     Dosage: 200 MILLIGRAM, TID (200 MILLIGRAMS EVERY 3 DAYS)
     Route: 065
  8. RISPERIDONE [Concomitant]
     Active Substance: RISPERIDONE
     Dosage: 6 MILLIGRAM (2+4 MILLIGRAM)
     Route: 065
  9. RISPERIDONE [Concomitant]
     Active Substance: RISPERIDONE
     Dosage: 7 MILLIGRAM
     Route: 065
  10. RISPERIDONE [Concomitant]
     Active Substance: RISPERIDONE
     Dosage: 5 MILLIGRAM
     Route: 065
     Dates: start: 20220926, end: 20221002
  11. RISPERIDONE [Concomitant]
     Active Substance: RISPERIDONE
     Dosage: 4 MILLIGRAM
     Route: 065
     Dates: start: 20221003, end: 20221007
  12. RISPERIDONE [Concomitant]
     Active Substance: RISPERIDONE
     Dosage: 2 MILLIGRAM
     Route: 065
     Dates: start: 20221008, end: 20221010
  13. RISPERIDONE [Concomitant]
     Active Substance: RISPERIDONE
     Dosage: 1 MILLIGRAM
     Route: 065
     Dates: start: 20221011, end: 20221016
  14. LORAZEPAM [Concomitant]
     Active Substance: LORAZEPAM
     Dosage: 0.5 MILLIGRAM
     Route: 065
  15. LORAZEPAM [Concomitant]
     Active Substance: LORAZEPAM
     Dosage: 0.65 MILLIGRAM, QD
     Route: 065
  16. ASPIRIN [Concomitant]
     Active Substance: ASPIRIN
     Dosage: 100 MILLIGRAM
     Route: 065
  17. ROSUVASTATIN CALCIUM [Concomitant]
     Active Substance: ROSUVASTATIN CALCIUM
     Dosage: 10 MILLIGRAM
     Route: 065
  18. POLYETHYLENE GLYCOL 4000 [Concomitant]
     Active Substance: POLYETHYLENE GLYCOL 4000
     Dosage: 12 GRAM
     Route: 065
     Dates: end: 20230511
  19. POLYETHYLENE GLYCOL 4000 [Concomitant]
     Active Substance: POLYETHYLENE GLYCOL 4000
     Dosage: 72 GRAM (3X2X12 GRAMS)
     Route: 065
     Dates: start: 202305
  20. LOSARTAN [Concomitant]
     Active Substance: LOSARTAN
     Dosage: 12.5 MILLIGRAM
     Route: 065
  21. NEBIVOLOL [Concomitant]
     Active Substance: NEBIVOLOL
     Dosage: 1.25 MILLIGRAM
     Route: 065
  22. Panadol forte [Concomitant]
     Dosage: 2 DOSES QD (0 TO 3 GRAMS PER DAY)
     Route: 065
     Dates: start: 20221008, end: 20221011
  23. LACTULOSE [Concomitant]
     Active Substance: LACTULOSE
     Dosage: 15 MILLIGRAM
     Route: 065
     Dates: start: 202305, end: 20230512
  24. CHLORHEXIDINE GLUCONATE [Concomitant]
     Active Substance: CHLORHEXIDINE GLUCONATE
     Dosage: 30 MILLILITER
     Route: 065
     Dates: start: 202305, end: 20230508
  25. CHLORHEXIDINE GLUCONATE [Concomitant]
     Active Substance: CHLORHEXIDINE GLUCONATE
     Dosage: 2 MILLIGRAMS/MILLILITRE
     Route: 065
     Dates: start: 202305, end: 20230508
  26. AMOXICILLIN [Concomitant]
     Active Substance: AMOXICILLIN
     Dosage: 500 MILLIGRAM
     Route: 065
     Dates: start: 202305, end: 20230508
  27. AMOXICILLIN [Concomitant]
     Active Substance: AMOXICILLIN
     Dosage: 500 MILLIGRAM, TID
     Route: 065
     Dates: start: 20221009, end: 20221011
  28. ABILIFY [Concomitant]
     Active Substance: ARIPIPRAZOLE
     Dosage: 7.5 MILLIGRAM
     Route: 065
     Dates: end: 2022
  29. CLOZAPINE [Concomitant]
     Active Substance: CLOZAPINE
     Dosage: UNK (WITH A 2-WEEK DOSE-ESCALATION SCHEDULE)
     Route: 065
     Dates: start: 20220927, end: 20221011
  30. CLOZAPINE [Concomitant]
     Active Substance: CLOZAPINE
     Dosage: 100 MILLIGRAM (E (25+75 MG)
     Route: 065
  31. VALPROIC ACID [Concomitant]
     Active Substance: VALPROIC ACID
     Dosage: 1000 MILLIGRAM
     Route: 065
  32. CEFUROXIM MIP PHARMA [Concomitant]
     Dosage: 1.5 GRAM (1.5 GRAMS AS A SINGLE DOSE) POWDER FOR SOLUTION
     Route: 065
     Dates: start: 20221009
  33. Ghemaxan [Concomitant]
     Dosage: UNK
     Route: 065
     Dates: start: 20221011
  34. SODIUM CHLORIDE [Suspect]
     Active Substance: SODIUM CHLORIDE
     Dosage: UNK
     Route: 065

REACTIONS (9)
  - Pneumonia [Unknown]
  - Myocarditis [Unknown]
  - C-reactive protein increased [Unknown]
  - Pyrexia [Recovered/Resolved]
  - Troponin T increased [Unknown]
  - Respiratory tract infection [Unknown]
  - Neutrophil count increased [Unknown]
  - White blood cell count increased [Unknown]
  - Off label use [Unknown]

NARRATIVE: CASE EVENT DATE: 20230501
